FAERS Safety Report 8168486-7 (Version None)
Quarter: 2012Q1

REPORT INFORMATION
  Report Type: 
  Country: None (occurrence: None)
  Receive Date: 20120227
  Receipt Date: 20120227
  Transmission Date: 20120608
  Serious: Yes (Life-Threatening, Hospitalization)
  Sender: FDA-Public Use
  Company Number: None

PATIENT
  Age: 76 Year
  Sex: Female
  Weight: 89 kg

DRUGS (2)
  1. GEMCITABINE [Suspect]
     Indication: BREAST CANCER
     Dosage: 2000 MG
     Route: 042
     Dates: start: 20120104, end: 20120104
  2. GEMZAAR [Concomitant]
     Indication: BREAST CANCER
     Dosage: 2000 MG
     Route: 042
     Dates: start: 20120111, end: 20120111

REACTIONS (1)
  - TOXIC EPIDERMAL NECROLYSIS [None]
